FAERS Safety Report 6043034-6 (Version None)
Quarter: 2009Q1

REPORT INFORMATION
  Report Type: 
  Country: None (occurrence: None)
  Receive Date: 20090119
  Receipt Date: 20090106
  Transmission Date: 20090719
  Serious: Yes (Other)
  Sender: FDA-Public Use
  Company Number: FR-ELI_LILLY_AND_COMPANY-FR200810002370

PATIENT
  Age: 80 Year
  Sex: Female
  Weight: 65 kg

DRUGS (6)
  1. FORTEO [Suspect]
     Indication: OSTEOPOROSIS
     Dosage: 20 UG, DAILY (1/D)
     Route: 065
     Dates: start: 20080624, end: 20081001
  2. SOTALOL HCL [Concomitant]
     Indication: ARRHYTHMIA
     Dosage: 160 MG, DAILY (1/D)
     Route: 048
  3. KARDEGIC [Concomitant]
     Route: 048
  4. OROCAL D(3) [Concomitant]
     Indication: OSTEOPOROSIS
     Route: 048
  5. VASTAREL [Concomitant]
     Dosage: 70 MG, DAILY (1/D)
     Route: 048
  6. ALDALIX [Concomitant]
     Indication: CARDIAC DISORDER
     Dosage: UNK, DAILY (1/D)
     Route: 048

REACTIONS (5)
  - ANOREXIA [None]
  - ASTHENIA [None]
  - DEPRESSION [None]
  - DRY SKIN [None]
  - WEIGHT DECREASED [None]
